FAERS Safety Report 18665826 (Version 1)
Quarter: 2020Q4

REPORT INFORMATION
  Report Type: Spontaneous
  Country: GB (occurrence: GB)
  Receive Date: 20201226
  Receipt Date: 20201226
  Transmission Date: 20210114
  Serious: Yes (Other)
  Sender: FDA-Public Use
  Company Number: GB-TEVA-2020-GB-1861592

PATIENT
  Age: 74 Year
  Sex: Female
  Weight: 63 kg

DRUGS (4)
  1. PARACETAMOL [Concomitant]
     Active Substance: ACETAMINOPHEN
     Indication: BACK PAIN
     Dosage: 8 DOSAGE FORMS
     Dates: start: 20200928
  2. MIRTAZAPINE. [Concomitant]
     Active Substance: MIRTAZAPINE
     Dosage: 1 DOSAGE FORMS DAILY; AT NIGHT
     Dates: start: 20201130
  3. MEMANTINE. [Suspect]
     Active Substance: MEMANTINE
     Dosage: TAKE HALF FOR 2 WEEKS THEN INCREASE TO ONE A DA.
     Route: 065
     Dates: start: 20201009
  4. HYDROXOCOBALAMIN [Concomitant]
     Active Substance: HYDROXOCOBALAMIN
     Dosage: TO BE ADMINISTERED BY HEALTHCARE PROFESSIONAL
     Dates: start: 20201001, end: 20201029

REACTIONS (2)
  - Agitation [Recovering/Resolving]
  - Aggression [Recovering/Resolving]

NARRATIVE: CASE EVENT DATE: 20201130
